FAERS Safety Report 25517703 (Version 2)
Quarter: 2025Q3

REPORT INFORMATION
  Report Type: Spontaneous
  Country: JP (occurrence: JP)
  Receive Date: 20250704
  Receipt Date: 20250806
  Transmission Date: 20251020
  Serious: Yes (Death)
  Sender: ALEXION PHARMACEUTICALS
  Company Number: JP-ASTRAZENECA-202506JPN024246JP

PATIENT
  Age: 65 Year
  Sex: Male

DRUGS (1)
  1. IMFINZI [Suspect]
     Active Substance: DURVALUMAB
     Indication: Squamous cell carcinoma of lung
     Route: 065

REACTIONS (3)
  - Interstitial lung disease [Fatal]
  - Respiratory distress [Fatal]
  - Cough [Fatal]
